FAERS Safety Report 5610462-X (Version None)
Quarter: 2008Q1

REPORT INFORMATION
  Report Type: 
  Country: None (occurrence: None)
  Receive Date: 20080128
  Receipt Date: 20080118
  Transmission Date: 20080703
  Serious: Yes (Hospitalization)
  Sender: FDA-Public Use
  Company Number: 2008US000269

PATIENT
  Age: 76 Year
  Sex: Female

DRUGS (6)
  1. VESICARE [Suspect]
     Indication: HYPERTONIC BLADDER
     Dosage: UID/QD
     Dates: start: 20071001
  2. ZOCOR [Concomitant]
  3. CALCIUM (CALCIUM) [Concomitant]
  4. ZOLOFT [Concomitant]
  5. PROTONIX [Concomitant]
  6. CENTRUM SILVER (ASCORBIC ACID, MINERALS NOS, VITAMINS NOS, VITAMIN B N [Concomitant]

REACTIONS (1)
  - LOSS OF CONSCIOUSNESS [None]
